FAERS Safety Report 5981403-0 (Version None)
Quarter: 2008Q4

REPORT INFORMATION
  Report Type: 
  Country: None (occurrence: None)
  Receive Date: 20081205
  Receipt Date: 20080222
  Transmission Date: 20090506
  Serious: No
  Sender: FDA-Public Use
  Company Number: US-AMGEN-KDL263433

PATIENT
  Sex: Female

DRUGS (2)
  1. ENBREL [Suspect]
     Indication: DRUG USE FOR UNKNOWN INDICATION
     Route: 058
     Dates: start: 20071222, end: 20080101
  2. METHOTREXATE [Concomitant]
     Route: 048
     Dates: start: 20060901

REACTIONS (4)
  - ACUTE SINUSITIS [None]
  - ORAL HERPES [None]
  - PAIN [None]
  - UPPER RESPIRATORY TRACT INFECTION [None]
